FAERS Safety Report 25196530 (Version 1)
Quarter: 2025Q2

REPORT INFORMATION
  Report Type: Report from Study
  Country: CA (occurrence: CA)
  Receive Date: 20250415
  Receipt Date: 20250415
  Transmission Date: 20250717
  Serious: Yes (Other)
  Sender: TEVA
  Company Number: CA-TEVA-VS-3321337

PATIENT
  Age: 29 Year
  Sex: Female

DRUGS (4)
  1. PREDNISONE [Suspect]
     Active Substance: PREDNISONE
     Indication: Product used for unknown indication
     Route: 065
  2. HUMIRA [Concomitant]
     Active Substance: ADALIMUMAB
     Indication: Product used for unknown indication
     Route: 065
  3. HYRIMOZ [Suspect]
     Active Substance: ADALIMUMAB-ADAZ
     Indication: Crohn^s disease
     Route: 058
  4. HYRIMOZ [Suspect]
     Active Substance: ADALIMUMAB-ADAZ
     Indication: Crohn^s disease
     Dosage: DOSE FORM: SOLUTION SUBCUTANEOUS
     Route: 058

REACTIONS (10)
  - Crohn^s disease [Unknown]
  - Oral pain [Unknown]
  - Off label use [Unknown]
  - Injection site pain [Unknown]
  - Therapy interrupted [Unknown]
  - Intentional dose omission [Unknown]
  - Injection site swelling [Unknown]
  - Aphthous ulcer [Unknown]
  - Treatment failure [Unknown]
  - Injection site reaction [Unknown]
